FAERS Safety Report 4452767-4 (Version None)
Quarter: 2004Q3

REPORT INFORMATION
  Report Type: 
  Country: None (occurrence: None)
  Receive Date: 20040813
  Receipt Date: 20040420
  Transmission Date: 20050211
  Serious: No
  Sender: FDA-Public Use
  Company Number: S04-USA-03379-01

PATIENT
  Age: 62 Year
  Sex: Female

DRUGS (8)
  1. NAMENDA [Suspect]
     Indication: BIPOLAR DISORDER
     Dosage: 10 MG QD PO
     Route: 048
     Dates: start: 20040413
  2. NAMENDA [Suspect]
     Indication: BIPOLAR DISORDER
     Dosage: 5 MG QD PO
     Route: 048
     Dates: start: 20040406, end: 20040412
  3. LAMICTAL [Concomitant]
  4. KLONOPIN [Concomitant]
  5. SEROQUEL [Concomitant]
  6. ZYPREXA [Concomitant]
  7. TOPAMAX [Concomitant]
  8. INDERAL [Concomitant]

REACTIONS (1)
  - ANXIETY [None]
